FAERS Safety Report 17941229 (Version 1)
Quarter: 2020Q2

REPORT INFORMATION
  Report Type: Spontaneous
  Country: US (occurrence: US)
  Receive Date: 20200625
  Receipt Date: 20200625
  Transmission Date: 20200714
  Serious: Yes (Hospitalization)
  Sender: FDA-Public Use
  Company Number: US-GLOBAL BLOOD THERAPEUTICS INC-US-GBT-20-01615

PATIENT
  Sex: Female

DRUGS (1)
  1. OXBRYTA [Suspect]
     Active Substance: VOXELOTOR
     Indication: SICKLE CELL DISEASE
     Route: 048
     Dates: end: 2020

REACTIONS (8)
  - Peripheral coldness [Recovering/Resolving]
  - Dysuria [Recovering/Resolving]
  - Palpitations [Recovering/Resolving]
  - Renal disorder [Recovering/Resolving]
  - Sickle cell anaemia with crisis [Unknown]
  - Hospitalisation [Unknown]
  - Chills [Recovering/Resolving]
  - Micturition frequency decreased [Recovering/Resolving]
